FAERS Safety Report 15252853 (Version 1)
Quarter: 2018Q3

REPORT INFORMATION
  Report Type: Spontaneous
  Country: US (occurrence: US)
  Receive Date: 20180807
  Receipt Date: 20180807
  Transmission Date: 20181010
  Serious: No
  Sender: FDA-Public Use
  Company Number: US-RADIUS HEALTH INC.-2018US001157

PATIENT
  Age: 76 Year
  Sex: Female
  Weight: 47.17 kg

DRUGS (1)
  1. TYMLOS [Suspect]
     Active Substance: ABALOPARATIDE
     Indication: OSTEOPOROSIS POSTMENOPAUSAL
     Dosage: 80 MCG, QD
     Route: 058
     Dates: start: 201806

REACTIONS (7)
  - Feeling abnormal [Unknown]
  - Sinusitis [Unknown]
  - Gait disturbance [Unknown]
  - Vision blurred [Unknown]
  - Product use issue [Unknown]
  - Hypoaesthesia [Unknown]
  - Somnolence [Unknown]

NARRATIVE: CASE EVENT DATE: 20180618
